FAERS Safety Report 5494475-7 (Version None)
Quarter: 2007Q4

REPORT INFORMATION
  Report Type: 
  Country: None (occurrence: None)
  Receive Date: 20071024
  Receipt Date: 20071015
  Transmission Date: 20080405
  Serious: Yes (Hospitalization)
  Sender: FDA-Public Use
  Company Number: FR-ABBOTT-07P-056-0420714-00

PATIENT
  Age: 47 Year
  Sex: Female

DRUGS (6)
  1. FENOFIBRATE [Suspect]
     Indication: DRUG USE FOR UNKNOWN INDICATION
     Route: 048
  2. COKENZEN [Suspect]
     Indication: HYPERTENSION
     Route: 048
     Dates: end: 20070829
  3. RABEPRAZOLE SODIUM [Suspect]
     Indication: DRUG USE FOR UNKNOWN INDICATION
     Route: 048
     Dates: end: 20070829
  4. AMLODIPINE BESYLATE [Suspect]
     Indication: DRUG USE FOR UNKNOWN INDICATION
     Route: 048
  5. LEVOTHYROXINE SODIUM [Suspect]
     Indication: HYPOTHYROIDISM
     Route: 048
  6. MONTELUKAST SODIUM [Suspect]
     Indication: ASTHMA
     Route: 048

REACTIONS (13)
  - ABDOMINAL PAIN UPPER [None]
  - ASTHENIA [None]
  - DIARRHOEA [None]
  - DYSPNOEA EXERTIONAL [None]
  - HAEMATURIA [None]
  - HAEMOLYTIC ANAEMIA [None]
  - HEPATIC STEATOSIS [None]
  - JAUNDICE [None]
  - LYMPHOEDEMA [None]
  - PYREXIA [None]
  - RASH PAPULAR [None]
  - STAPHYLOCOCCAL INFECTION [None]
  - TOOTH INFECTION [None]
